FAERS Safety Report 13933481 (Version 2)
Quarter: 2017Q3

REPORT INFORMATION
  Report Type: Report from Study
  Country: JP (occurrence: JP)
  Receive Date: 20170904
  Receipt Date: 20170911
  Transmission Date: 20171127
  Serious: Yes (Life-Threatening, Disabling, Other)
  Sender: FDA-Public Use
  Company Number: PHHY2013JP167895

PATIENT
  Age: 16 Year
  Sex: Male
  Weight: 54 kg

DRUGS (20)
  1. DECADRON [Concomitant]
     Active Substance: DEXAMETHASONE
     Indication: NEOPLASM MALIGNANT
     Dosage: 20 MG/M2, QD
     Route: 051
     Dates: start: 20111031, end: 20111105
  2. CYTARABINE. [Concomitant]
     Active Substance: CYTARABINE
     Indication: NEOPLASM MALIGNANT
     Route: 029
     Dates: start: 20111019, end: 20111019
  3. ETOPOSIDE. [Concomitant]
     Active Substance: ETOPOSIDE
     Dosage: 150 MG/M2, QD
     Route: 041
     Dates: start: 20111216, end: 20111216
  4. METHOTREXATE. [Concomitant]
     Active Substance: METHOTREXATE
     Indication: NEOPLASM MALIGNANT
     Dosage: 12 MG, QD
     Route: 029
     Dates: start: 20111104, end: 20111104
  5. MELPHALAN. [Suspect]
     Active Substance: MELPHALAN
     Indication: PRODUCT USED FOR UNKNOWN INDICATION
     Route: 051
  6. ETOPOSIDE. [Concomitant]
     Active Substance: ETOPOSIDE
     Dosage: 150 MG/M2, QD
     Route: 041
     Dates: start: 20111209, end: 20111209
  7. DECADRON [Concomitant]
     Active Substance: DEXAMETHASONE
     Indication: NEOPLASM MALIGNANT
     Dosage: 10 MG/M2, QD
     Route: 048
     Dates: start: 20111209, end: 20111222
  8. ETOPOSIDE. [Concomitant]
     Active Substance: ETOPOSIDE
     Dosage: 150 MG/M2, QD
     Route: 041
     Dates: start: 20111213, end: 20111213
  9. SAXIZON [Concomitant]
     Active Substance: HYDROCORTISONE SODIUM SUCCINATE
     Indication: NEOPLASM MALIGNANT
     Dosage: 25 MG, QD
     Route: 029
     Dates: start: 20111104, end: 20111104
  10. MAXIPIME [Concomitant]
     Active Substance: CEFEPIME HYDROCHLORIDE
     Indication: PRODUCT USED FOR UNKNOWN INDICATION
     Route: 042
     Dates: start: 20111018, end: 20111114
  11. ETOPOSIDE. [Concomitant]
     Active Substance: ETOPOSIDE
     Indication: NEOPLASM MALIGNANT
     Dosage: 200 MG/M2, QD
     Route: 041
     Dates: start: 20111102, end: 20111104
  12. CYLOCIDE [Concomitant]
     Active Substance: CYTARABINE
     Dosage: 30 MG, QD
     Route: 029
     Dates: start: 20111104, end: 20111104
  13. ARRANON [Suspect]
     Active Substance: NELARABINE
     Dosage: 650 MG/M2, QD
     Route: 042
     Dates: start: 20111128, end: 20111201
  14. LEUNASE [Suspect]
     Active Substance: ASPARAGINASE
     Indication: NEOPLASM MALIGNANT
     Dosage: UNK
     Route: 041
     Dates: start: 20111105, end: 20111105
  15. LEUNASE [Suspect]
     Active Substance: ASPARAGINASE
     Dosage: UNK
     Route: 041
     Dates: start: 20111111, end: 20111111
  16. CYLOCIDE [Concomitant]
     Active Substance: CYTARABINE
     Indication: NEOPLASM MALIGNANT
     Dosage: 4000 MG/M2, QD
     Route: 051
     Dates: start: 20111031, end: 20111101
  17. GRANISETRON [Concomitant]
     Active Substance: GRANISETRON
     Dosage: UNK
     Route: 042
     Dates: start: 20111128, end: 20111203
  18. ARRANON [Suspect]
     Active Substance: NELARABINE
     Indication: T-CELL TYPE ACUTE LEUKAEMIA
     Dosage: 650 MG/M2, QD
     Route: 042
     Dates: start: 20111024, end: 20111028
  19. GRANISETRON [Concomitant]
     Active Substance: GRANISETRON
     Indication: PROPHYLAXIS
     Route: 042
     Dates: start: 20111024, end: 20111029
  20. RASURITEK [Concomitant]
     Active Substance: RASBURICASE
     Indication: PROPHYLAXIS
     Route: 041
     Dates: start: 20111023, end: 20111031

REACTIONS (14)
  - Platelet count decreased [Recovered/Resolved]
  - Appendicitis perforated [Recovered/Resolved]
  - Myelopathy [Recovered/Resolved with Sequelae]
  - Febrile neutropenia [Recovered/Resolved]
  - Antithrombin III decreased [Recovered/Resolved]
  - Muscular weakness [Not Recovered/Not Resolved]
  - Gait inability [Not Recovered/Not Resolved]
  - Bladder disorder [Not Recovered/Not Resolved]
  - Hypogammaglobulinaemia [Recovered/Resolved]
  - Disseminated intravascular coagulation [Recovering/Resolving]
  - Anorectal disorder [Not Recovered/Not Resolved]
  - Neutropenia [Recovered/Resolved]
  - Anaemia [Recovered/Resolved]
  - Histiocytosis haematophagic [Recovering/Resolving]

NARRATIVE: CASE EVENT DATE: 20111026
